FAERS Safety Report 11401458 (Version 2)
Quarter: 2015Q3

REPORT INFORMATION
  Report Type: Spontaneous
  Country: CN (occurrence: CN)
  Receive Date: 20150820
  Receipt Date: 20150827
  Transmission Date: 20151125
  Serious: Yes (Death, Other)
  Sender: FDA-Public Use
  Company Number: CN-009507513-1508CHN007477

PATIENT
  Age: 67 Year
  Sex: Male

DRUGS (9)
  1. IMIPENEM AND CILASTATIN [Suspect]
     Active Substance: CILASTATIN SODIUM\IMIPENEM
     Indication: TRICHOSPORON INFECTION
     Dosage: 500 MG EVERY 8 HOURS
     Route: 042
  2. CANCIDAS [Suspect]
     Active Substance: CASPOFUNGIN ACETATE
     Dosage: 50 MG DAILY THEREAFTER
  3. CANCIDAS [Suspect]
     Active Substance: CASPOFUNGIN ACETATE
     Indication: TRICHOSPORON INFECTION
     Dosage: LOADING DOSE, 70 MG
  4. TEICOPLANIN [Concomitant]
     Active Substance: TEICOPLANIN
     Indication: TRICHOSPORON INFECTION
     Dosage: 400 MG TWICE DAILY FOR 3 DAYS
     Route: 042
  5. TEICOPLANIN [Concomitant]
     Active Substance: TEICOPLANIN
     Dosage: 400 MG DAILY THEREAFTER
     Route: 042
  6. METHYLPREDNISOLONE. [Concomitant]
     Active Substance: METHYLPREDNISOLONE
     Indication: IMMUNOSUPPRESSANT DRUG THERAPY
     Dosage: 80 MG EVERY 12 HOURS
  7. SULFAMETHOXAZOLE (+) TRIMETHOPRIM [Concomitant]
     Active Substance: SULFAMETHOXAZOLE\TRIMETHOPRIM
     Indication: TRICHOSPORON INFECTION
     Dosage: 160 MG TWICE DAILY
  8. INSULIN [Concomitant]
     Active Substance: INSULIN NOS
     Indication: DIABETES MELLITUS
  9. IMIPENEM AND CILASTATIN [Suspect]
     Active Substance: CILASTATIN SODIUM\IMIPENEM
     Dosage: 500 MG ONCE EVERY 6 HOURS

REACTIONS (2)
  - Sepsis [Fatal]
  - Multi-organ failure [Fatal]
